FAERS Safety Report 18933357 (Version 1)
Quarter: 2021Q1

REPORT INFORMATION
  Report Type: Spontaneous
  Country: US (occurrence: US)
  Receive Date: 20210224
  Receipt Date: 20210224
  Transmission Date: 20210420
  Serious: Yes (Other)
  Sender: FDA-Public Use
  Company Number: US-MYLANLABS-2021M1011151

PATIENT
  Age: 23 Year
  Sex: Male

DRUGS (9)
  1. CLOFARABINE. [Suspect]
     Active Substance: CLOFARABINE
     Indication: ACUTE MYELOID LEUKAEMIA
     Dosage: SECOND INDUCTION THERAPY....
     Route: 065
  2. ASPARAGINASE [Concomitant]
     Active Substance: ASPARAGINASE
     Indication: ACUTE MYELOID LEUKAEMIA
     Dosage: INDUCTION THERAPY: FULL DOSE
     Route: 065
  3. IMMUNOGLOBULIN                     /07494701/ [Concomitant]
     Active Substance: IMMUNE GLOBULIN NOS
     Indication: HYPOGAMMAGLOBULINAEMIA
     Dosage: UNK, MONTHLY
     Route: 042
  4. METFORMIN [Concomitant]
     Active Substance: METFORMIN HYDROCHLORIDE
     Indication: TYPE 2 DIABETES MELLITUS
     Route: 065
  5. ENALAPRIL [Concomitant]
     Active Substance: ENALAPRIL
     Indication: HYPERTENSION
     Route: 065
  6. CYTARABINE. [Suspect]
     Active Substance: CYTARABINE
     Indication: ACUTE MYELOID LEUKAEMIA
     Dosage: INDUCTION THERAPY...
     Route: 065
  7. FENOFIBRATE. [Concomitant]
     Active Substance: FENOFIBRATE
     Indication: HYPERTRIGLYCERIDAEMIA
     Route: 065
  8. SAXAGLIPTIN [Concomitant]
     Active Substance: SAXAGLIPTIN
     Indication: TYPE 2 DIABETES MELLITUS
     Route: 065
  9. ERGOCALCIFEROL. [Concomitant]
     Active Substance: ERGOCALCIFEROL
     Indication: VITAMIN D DEFICIENCY
     Dosage: HIGH DOSE, QW
     Route: 065

REACTIONS (6)
  - Pyrexia [Unknown]
  - Drug eruption [Unknown]
  - Pulmonary oedema [Unknown]
  - Mucosal inflammation [Unknown]
  - Febrile neutropenia [Unknown]
  - Pancytopenia [Unknown]
